FAERS Safety Report 16211864 (Version 1)
Quarter: 2019Q2

REPORT INFORMATION
  Report Type: Spontaneous
  Country: CN (occurrence: CN)
  Receive Date: 20190418
  Receipt Date: 20190418
  Transmission Date: 20190711
  Serious: Yes (Other)
  Sender: FDA-Public Use
  Company Number: CN-ROCHE-2304236

PATIENT
  Age: 61 Year
  Sex: Female
  Weight: 54 kg

DRUGS (6)
  1. BEVACIZUMAB. [Suspect]
     Active Substance: BEVACIZUMAB
     Indication: LUNG ADENOCARCINOMA
     Route: 065
     Dates: start: 20160726
  2. DDP [Concomitant]
     Active Substance: CISPLATIN
     Indication: PLEURAL EFFUSION
     Route: 065
  3. INTERLEUKIN-11 [Concomitant]
     Active Substance: OPRELVEKIN
     Indication: PLEURAL EFFUSION
     Route: 065
  4. CARBOPLATIN. [Concomitant]
     Active Substance: CARBOPLATIN
     Indication: LUNG ADENOCARCINOMA
     Route: 065
     Dates: start: 20160726
  5. PEMETREXED. [Concomitant]
     Active Substance: PEMETREXED
     Dosage: 0.8, AT DAY1
     Route: 065
     Dates: start: 20161020
  6. PEMETREXED. [Concomitant]
     Active Substance: PEMETREXED
     Indication: LUNG ADENOCARCINOMA
     Route: 065
     Dates: start: 20160726

REACTIONS (4)
  - Pneumonitis [Unknown]
  - Atelectasis [Unknown]
  - Asthenia [Recovering/Resolving]
  - Lung neoplasm [Unknown]

NARRATIVE: CASE EVENT DATE: 20170222
